FAERS Safety Report 6090733-6 (Version None)
Quarter: 2009Q1

REPORT INFORMATION
  Report Type: 
  Country: None (occurrence: None)
  Receive Date: 20090224
  Receipt Date: 20090130
  Transmission Date: 20090719
  Serious: No
  Sender: FDA-Public Use
  Company Number: US-ABBOTT-09P-163-0501200-00

PATIENT
  Sex: Male
  Weight: 79.45 kg

DRUGS (3)
  1. SIMCOR [Suspect]
     Indication: LOW DENSITY LIPOPROTEIN INCREASED
     Dosage: 500/20MG
     Route: 048
     Dates: start: 20081203, end: 20090130
  2. ASPIRIN [Concomitant]
     Indication: PROPHYLAXIS
     Route: 048
     Dates: start: 20090126, end: 20090129
  3. ASPIRIN [Concomitant]
     Indication: ADVERSE DRUG REACTION

REACTIONS (6)
  - ERYTHEMA [None]
  - FLUSHING [None]
  - HEADACHE [None]
  - PRURITUS [None]
  - RASH [None]
  - TINNITUS [None]
